FAERS Safety Report 7586458-8 (Version None)
Quarter: 2011Q3

REPORT INFORMATION
  Report Type: 
  Country: None (occurrence: None)
  Receive Date: 20110701
  Receipt Date: 20110624
  Transmission Date: 20111222
  Serious: Yes (Hospitalization)
  Sender: FDA-Public Use
  Company Number: Z0010256A

PATIENT
  Sex: Male
  Weight: 78 kg

DRUGS (3)
  1. LOSARTAN POTASSIUM [Concomitant]
     Indication: HYPERTENSION
     Dosage: 100MG PER DAY
     Route: 048
     Dates: start: 20110408
  2. SPIRIVA [Concomitant]
     Dosage: 2.5MCG TWICE PER DAY
     Route: 048
  3. PAZOPANIB [Suspect]
     Indication: RENAL CELL CARCINOMA
     Dosage: 800MG PER DAY
     Route: 048
     Dates: start: 20110331

REACTIONS (3)
  - HYDRONEPHROSIS [None]
  - CALCULUS URINARY [None]
  - RENAL FAILURE ACUTE [None]
